FAERS Safety Report 6291444-4 (Version None)
Quarter: 2009Q3

REPORT INFORMATION
  Report Type: 
  Country: None (occurrence: None)
  Receive Date: 20090730
  Receipt Date: 20090605
  Transmission Date: 20100115
  Serious: Yes (Other)
  Sender: FDA-Public Use
  Company Number: US-PURDUE-USA-2009-0038825

PATIENT
  Sex: Male

DRUGS (3)
  1. OXYCONTIN [Suspect]
     Indication: PAIN
     Dosage: 160 MG, Q8H
  2. ROXICODONE [Concomitant]
     Dosage: 5 MG, TID
  3. LORTAB [Concomitant]
     Dosage: 10 MG, TID

REACTIONS (6)
  - DRUG WITHDRAWAL SYNDROME [None]
  - GENERAL PHYSICAL HEALTH DETERIORATION [None]
  - INFLUENZA LIKE ILLNESS [None]
  - PAIN [None]
  - SUICIDAL IDEATION [None]
  - SURGERY [None]
